FAERS Safety Report 13422386 (Version 1)
Quarter: 2017Q2

REPORT INFORMATION
  Report Type: Spontaneous
  Country: US (occurrence: US)
  Receive Date: 20170410
  Receipt Date: 20170410
  Transmission Date: 20170830
  Serious: No
  Sender: FDA-Public Use
  Company Number: US-CELGENEUS-USA-20170400076

PATIENT
  Sex: Female

DRUGS (2)
  1. OTEZLA [Suspect]
     Active Substance: APREMILAST
     Indication: PSORIASIS
     Route: 048
     Dates: start: 20160801
  2. OTEZLA [Suspect]
     Active Substance: APREMILAST
     Dosage: 1 TABLET EVERY OTHER DAY AND ALTERNATING WITH 1/2 TABLET
     Route: 048

REACTIONS (1)
  - Diarrhoea [Unknown]
